FAERS Safety Report 13334378 (Version 1)
Quarter: 2017Q1

REPORT INFORMATION
  Report Type: Spontaneous
  Country: KR (occurrence: KR)
  Receive Date: 20170314
  Receipt Date: 20170314
  Transmission Date: 20170428
  Serious: Yes (Other)
  Sender: FDA-Public Use
  Company Number: KR-BAUSCH-BL-2017-006253

PATIENT
  Age: 24 Year
  Sex: Male

DRUGS (3)
  1. VERTEPORFIN (NVO) [Suspect]
     Active Substance: VERTEPORFIN
     Indication: EYE HAEMANGIOMA
     Route: 042
  2. SILICONE OIL [Concomitant]
     Indication: PRODUCT USED FOR UNKNOWN INDICATION
  3. AVASTIN [Concomitant]
     Active Substance: BEVACIZUMAB
     Indication: PRODUCT USED FOR UNKNOWN INDICATION

REACTIONS (2)
  - Retinal haemorrhage [Unknown]
  - Retinal detachment [Unknown]
